FAERS Safety Report 11030183 (Version 2)
Quarter: 2015Q2

REPORT INFORMATION
  Report Type: Spontaneous
  Country: US (occurrence: US)
  Receive Date: 20150415
  Receipt Date: 20150508
  Transmission Date: 20150821
  Serious: Yes (Hospitalization)
  Sender: FDA-Public Use
  Company Number: US-BAYER-2015-133227

PATIENT
  Age: 26 Year
  Sex: Female
  Weight: 83.9 kg

DRUGS (1)
  1. MIRENA [Suspect]
     Active Substance: LEVONORGESTREL
     Indication: CONTRACEPTION
     Dosage: 20 MCG/24HR, CONT
     Route: 015
     Dates: start: 20110413, end: 20141113

REACTIONS (5)
  - Device breakage [None]
  - Pain [None]
  - Injury [None]
  - Complication of device removal [None]
  - Uterine perforation [None]

NARRATIVE: CASE EVENT DATE: 2013
